FAERS Safety Report 14411596 (Version 2)
Quarter: 2018Q1

REPORT INFORMATION
  Report Type: Spontaneous
  Country: US (occurrence: US)
  Receive Date: 20180119
  Receipt Date: 20180303
  Transmission Date: 20180509
  Serious: Yes (Other)
  Sender: FDA-Public Use
  Company Number: US-GLAXOSMITHKLINE-US2018005183

PATIENT
  Age: 88 Year
  Sex: Female
  Weight: 79 kg

DRUGS (17)
  1. TUMS [Concomitant]
     Active Substance: CALCIUM CARBONATE
  2. CALCIUM CARBONATE WITH VITAMIN D [Concomitant]
     Active Substance: CALCIUM CARBONATE\ERGOCALCIFEROL
  3. MECLIZINE [Concomitant]
     Active Substance: MECLIZINE HYDROCHLORIDE
  4. ZOLPIDEM [Concomitant]
     Active Substance: ZOLPIDEM\ZOLPIDEM TARTRATE
  5. ZETIA [Concomitant]
     Active Substance: EZETIMIBE
  6. ARNUITY ELLIPTA [Suspect]
     Active Substance: FLUTICASONE FUROATE
     Indication: ASTHMA
     Dosage: 1 PUFF(S), QD
     Route: 055
     Dates: start: 20171015
  7. FLUTICASONE. [Suspect]
     Active Substance: FLUTICASONE
  8. INFLUENZA SHOT [Concomitant]
     Active Substance: INFLUENZA VIRUS VACCINE
     Dates: start: 20171026
  9. OMEGA-3-ACID ETHYL ESTERS. [Concomitant]
     Active Substance: OMEGA-3-ACID ETHYL ESTERS
  10. RANITIDINE. [Concomitant]
     Active Substance: RANITIDINE
  11. ALBUTEROL SULFATE. [Concomitant]
     Active Substance: ALBUTEROL SULFATE
  12. FUROSEMIDE. [Concomitant]
     Active Substance: FUROSEMIDE
  13. CITALOPRAM [Concomitant]
     Active Substance: CITALOPRAM HYDROBROMIDE
  14. PANTOPRAZOLE [Concomitant]
     Active Substance: PANTOPRAZOLE
  15. QUINAPRIL. [Concomitant]
     Active Substance: QUINAPRIL
  16. HYDROCORTISONE. [Concomitant]
     Active Substance: HYDROCORTISONE
  17. PRAVASTATIN. [Concomitant]
     Active Substance: PRAVASTATIN

REACTIONS (13)
  - Nasal congestion [Recovered/Resolved]
  - Nasal dryness [Not Recovered/Not Resolved]
  - Drug hypersensitivity [Unknown]
  - Pruritus generalised [Unknown]
  - Constipation [Recovered/Resolved]
  - Nasal pruritus [Recovering/Resolving]
  - Asthma [Unknown]
  - Eye pruritus [Recovered/Resolved]
  - Drug dose omission [Unknown]
  - Choking [Recovered/Resolved]
  - Tremor [Not Recovered/Not Resolved]
  - Abdominal pain upper [Recovered/Resolved]
  - Dyspnoea [Unknown]

NARRATIVE: CASE EVENT DATE: 20171025
